FAERS Safety Report 5158971-4 (Version None)
Quarter: 2006Q4

REPORT INFORMATION
  Report Type: 
  Country: None (occurrence: None)
  Receive Date: 20061128
  Receipt Date: 20061117
  Transmission Date: 20070319
  Serious: Yes (Hospitalization, Other)
  Sender: FDA-Public Use
  Company Number: FR-BRISTOL-MYERS SQUIBB COMPANY-13584206

PATIENT
  Age: 63 Year
  Sex: Male

DRUGS (5)
  1. PRAVASTATIN [Suspect]
     Route: 048
  2. ASPIRIN [Concomitant]
  3. AMLOR [Concomitant]
  4. KALEORID [Concomitant]
  5. PRITOR [Concomitant]

REACTIONS (4)
  - HAEMATOMA [None]
  - MUSCLE RUPTURE [None]
  - MYALGIA [None]
  - MYOCARDIAL INFARCTION [None]
